FAERS Safety Report 8807879 (Version 2)
Quarter: 2012Q4

REPORT INFORMATION
  Report Type: 
  Country: DE (occurrence: DE)
  Receive Date: 20120925
  Receipt Date: 20121030
  Transmission Date: 20130627
  Serious: Yes (Hospitalization, Congenital Anomaly, Other)
  Sender: FDA-Public Use
  Company Number: DE-ABBOTT-12P-062-0981846-00

PATIENT
  Sex: Female

DRUGS (5)
  1. IMPFSTOFF GRIPPE [Suspect]
     Indication: MATERNAL EXPOSURE TIMING UNSPECIFIED
     Route: 064
  2. NEURIUM [Suspect]
     Indication: MATERNAL EXPOSURE TIMING UNSPECIFIED
     Route: 064
  3. FOLIC ACID [Suspect]
     Indication: MATERNAL EXPOSURE TIMING UNSPECIFIED
     Route: 064
  4. HUMALOG [Suspect]
     Indication: MATERNAL EXPOSURE TIMING UNSPECIFIED
     Route: 064
  5. NOVORAPID [Suspect]
     Indication: MATERNAL EXPOSURE TIMING UNSPECIFIED
     Route: 064

REACTIONS (5)
  - Atrial septal defect [Unknown]
  - Gastroschisis [Recovered/Resolved with Sequelae]
  - Haemangioma [Unknown]
  - Foetal exposure during pregnancy [Unknown]
  - Premature baby [Unknown]
